FAERS Safety Report 5421564-5 (Version None)
Quarter: 2007Q3

REPORT INFORMATION
  Report Type: 
  Country: None (occurrence: None)
  Receive Date: 20070821
  Receipt Date: 20070809
  Transmission Date: 20080115
  Serious: Yes (Other)
  Sender: FDA-Public Use
  Company Number: US-PFIZER INC-2005140863

PATIENT
  Age: 69 Year
  Sex: Female
  Weight: 76.7 kg

DRUGS (4)
  1. NORVASC [Suspect]
     Indication: HYPERTENSION
     Route: 048
  2. NORVASC [Suspect]
     Route: 048
  3. ASPIRIN [Concomitant]
     Dosage: FREQ:UNKNOWN
     Route: 048
  4. VIOXX [Concomitant]
     Indication: ARTHRITIS
     Dosage: FREQ:UNKNOWN
     Route: 048

REACTIONS (3)
  - BLOOD PRESSURE INADEQUATELY CONTROLLED [None]
  - CATHETERISATION CARDIAC [None]
  - THYROID NEOPLASM [None]
